FAERS Safety Report 13125641 (Version 1)
Quarter: 2017Q1

REPORT INFORMATION
  Report Type: Spontaneous
  Country: US (occurrence: US)
  Receive Date: 20170118
  Receipt Date: 20170118
  Transmission Date: 20170428
  Serious: No
  Sender: FDA-Public Use
  Company Number: US-PFIZER INC-2017018389

PATIENT
  Age: 61 Year
  Sex: Female

DRUGS (2)
  1. FLECTOR [Suspect]
     Active Substance: DICLOFENAC EPOLAMINE
     Indication: PAIN
     Dosage: UNK
  2. ADVIL [Concomitant]
     Active Substance: IBUPROFEN
     Indication: PAIN

REACTIONS (1)
  - Drug effect incomplete [Unknown]
